FAERS Safety Report 7909950-2 (Version None)
Quarter: 2011Q4

REPORT INFORMATION
  Report Type: 
  Country: None (occurrence: None)
  Receive Date: 20111111
  Receipt Date: 20111102
  Transmission Date: 20120403
  Serious: Yes (Hospitalization)
  Sender: FDA-Public Use
  Company Number: US-JNJFOC-20111005047

PATIENT
  Sex: Female
  Weight: 68.04 kg

DRUGS (6)
  1. REMICADE [Suspect]
     Route: 042
     Dates: start: 20080530
  2. REMICADE [Suspect]
     Route: 042
     Dates: start: 20080415
  3. REMICADE [Suspect]
     Indication: CROHN'S DISEASE
     Route: 042
     Dates: start: 20071203
  4. REMICADE [Suspect]
     Route: 042
     Dates: start: 20020311
  5. REMICADE [Suspect]
     Dosage: 59 INFUSIONS IN TOTAL
     Route: 042
     Dates: start: 20090904
  6. REMICADE [Suspect]
     Route: 042

REACTIONS (2)
  - ABDOMINAL ABSCESS [None]
  - INTESTINAL RESECTION [None]
